FAERS Safety Report 16547424 (Version 1)
Quarter: 2019Q3

REPORT INFORMATION
  Report Type: Spontaneous
  Country: US (occurrence: US)
  Receive Date: 20190709
  Receipt Date: 20190709
  Transmission Date: 20191004
  Serious: Yes (Hospitalization)
  Sender: FDA-Public Use
  Company Number: US-CHURCH + DWIGHT CO., INC.-2070552

PATIENT
  Sex: Male

DRUGS (1)
  1. ORAJEL INSTANT RELIEF FOR TEETHING PAIN DAYTIME NIGHTTIME TWIN PACK [Suspect]
     Active Substance: BENZOCAINE

REACTIONS (1)
  - Seizure [Unknown]
